FAERS Safety Report 6815676-9 (Version None)
Quarter: 2010Q3

REPORT INFORMATION
  Report Type: 
  Country: None (occurrence: None)
  Receive Date: 20100702
  Receipt Date: 20100630
  Transmission Date: 20110219
  Serious: Yes (Death, Other)
  Sender: FDA-Public Use
  Company Number: US-ABBOTT-10P-163-0654426-00

PATIENT
  Sex: Male
  Weight: 77.18 kg

DRUGS (7)
  1. ZEMPLAR [Suspect]
     Indication: RENAL FAILURE
     Dosage: UNKNOWN DOSE
     Dates: end: 20100304
  2. ZEMPLAR [Suspect]
  3. ZEMPLAR [Suspect]
     Indication: RENAL DISORDER
  4. LIPITOR [Concomitant]
     Indication: BLOOD CHOLESTEROL INCREASED
     Dates: end: 20100304
  5. HYDROCHLOROTHIAZIDE [Concomitant]
     Indication: PRODUCT USED FOR UNKNOWN INDICATION
     Dates: end: 20100304
  6. UNKNOWN BLOOD PRESSURE MEDICATION [Concomitant]
     Indication: HYPERTENSION
     Dates: end: 20100304
  7. OTHER UNKNOWN MEDICATIONS [Concomitant]
     Indication: PRODUCT USED FOR UNKNOWN INDICATION
     Dates: end: 20100304

REACTIONS (3)
  - DYSPNOEA [None]
  - FATIGUE [None]
  - RENAL FAILURE [None]
